FAERS Safety Report 7549972-7 (Version None)
Quarter: 2011Q2

REPORT INFORMATION
  Report Type: 
  Country: None (occurrence: None)
  Receive Date: 20110615
  Receipt Date: 20110613
  Transmission Date: 20111010
  Serious: No
  Sender: FDA-Public Use
  Company Number: US-PFIZER INC-2011128832

PATIENT
  Sex: Female

DRUGS (10)
  1. AMLODIPINE [Concomitant]
     Dosage: 5 MG, UNK
  2. RANITIDINE [Concomitant]
     Dosage: 150 MG, UNK
  3. SUTENT [Suspect]
     Dosage: 50 MG, 1 CAPSULE EVERY DAY FOR 28 DAYS, REPEAT EVERY 6 WEEKS
     Route: 048
  4. VALSARTAN [Concomitant]
     Dosage: 40 MG, UNK
  5. LORAZEPAM [Concomitant]
     Dosage: 1 MG, UNK
  6. BENTYL [Concomitant]
     Dosage: 20 MG, UNK
  7. OXYBUTYNIN [Concomitant]
     Dosage: 5 MG, UNK
  8. CITRACAL + D [Concomitant]
     Dosage: UNK
  9. PHENOBARB [Concomitant]
     Dosage: 30 MG, UNK
  10. NEXIUM [Concomitant]
     Dosage: 40 MG, UNK

REACTIONS (2)
  - DIARRHOEA [None]
  - PRURITUS [None]
